FAERS Safety Report 9958700 (Version 1)
Quarter: 2014Q1

REPORT INFORMATION
  Report Type: Spontaneous
  Country: US (occurrence: None)
  Receive Date: 20140228
  Receipt Date: 20140228
  Transmission Date: 20141002
  Serious: Yes (Death)
  Sender: FDA-Public Use
  Company Number: None

PATIENT
  Sex: 0

DRUGS (5)
  1. AVELOX [Suspect]
     Dosage: 1 PILL
     Dates: start: 20130607
  2. BUMETANIDE [Suspect]
  3. PREDNISONE [Suspect]
  4. ADVAIR [Suspect]
  5. K-DUR [Suspect]

REACTIONS (1)
  - Drug hypersensitivity [None]
